FAERS Safety Report 11252480 (Version 1)
Quarter: 2015Q3

REPORT INFORMATION
  Report Type: Spontaneous
  Country: US (occurrence: US)
  Receive Date: 20150708
  Receipt Date: 20150708
  Transmission Date: 20151125
  Serious: No
  Sender: FDA-Public Use
  Company Number: US-ELI_LILLY_AND_COMPANY-US95071477A

PATIENT
  Age: 47 Year
  Sex: Female

DRUGS (5)
  1. PROZAC [Suspect]
     Active Substance: FLUOXETINE HYDROCHLORIDE
     Indication: FIBROMYALGIA
     Dosage: 20 MG, DAILY (1/D)
     Route: 048
     Dates: start: 1989, end: 19950617
  2. CIPRO [Concomitant]
     Active Substance: CIPROFLOXACIN HYDROCHLORIDE
     Dosage: UNK, UNKNOWN
  3. ZANTAC [Concomitant]
     Active Substance: RANITIDINE HYDROCHLORIDE
     Dosage: UNK, UNKNOWN
  4. ESTROGEN NOS [Concomitant]
     Active Substance: ESTROGENS
     Dosage: UNK, UNKNOWN
  5. PROGESTERONE. [Concomitant]
     Active Substance: PROGESTERONE
     Dosage: UNK, UNKNOWN

REACTIONS (5)
  - Nervousness [Unknown]
  - Limb discomfort [Unknown]
  - Tremor [Unknown]
  - Nausea [Unknown]
  - Mydriasis [Unknown]

NARRATIVE: CASE EVENT DATE: 199502
